FAERS Safety Report 12730065 (Version 3)
Quarter: 2016Q4

REPORT INFORMATION
  Report Type: Spontaneous
  Country: GB (occurrence: GB)
  Receive Date: 20160909
  Receipt Date: 20161212
  Transmission Date: 20170207
  Serious: Yes (Other)
  Sender: FDA-Public Use
  Company Number: GB-OTSUKA-2016_020147

PATIENT
  Age: 43 Year
  Sex: Female
  Weight: 96 kg

DRUGS (7)
  1. MICRONOR [Concomitant]
     Active Substance: NORETHINDRONE
     Indication: CONTRACEPTION
     Dosage: UNK
     Route: 065
  2. ESOMEPRAZOLE [Concomitant]
     Active Substance: ESOMEPRAZOLE
     Indication: PRODUCT USED FOR UNKNOWN INDICATION
     Dosage: 20 MG, UNK
     Route: 065
  3. JINARC [Suspect]
     Active Substance: TOLVAPTAN
     Indication: CONGENITAL CYSTIC KIDNEY DISEASE
     Dosage: 45 MG, UNK (IN MORNING)
     Route: 048
     Dates: start: 20160722
  4. BENDROFLUAZIDE [Concomitant]
     Active Substance: BENDROFLUMETHIAZIDE
     Indication: PRODUCT USED FOR UNKNOWN INDICATION
     Dosage: UNK
     Route: 065
  5. JINARC [Suspect]
     Active Substance: TOLVAPTAN
     Dosage: 15 MG, UNK (IN EVENING)
     Route: 048
     Dates: start: 20160722
  6. PROPANOLOL [Concomitant]
     Active Substance: PROPRANOLOL HYDROCHLORIDE
     Indication: PRODUCT USED FOR UNKNOWN INDICATION
     Dosage: 80 MG, UNK
     Route: 065
  7. VITAMIN D [Concomitant]
     Active Substance: CHOLECALCIFEROL
     Indication: PRODUCT USED FOR UNKNOWN INDICATION
     Dosage: UNK, EVERY 2 WEEKS
     Route: 065

REACTIONS (13)
  - Dry mouth [Unknown]
  - Headache [Recovered/Resolved]
  - Urine analysis abnormal [Recovered/Resolved]
  - Vaginal haemorrhage [Not Recovered/Not Resolved]
  - Polydipsia [Unknown]
  - Visual impairment [Unknown]
  - Muscle spasms [Unknown]
  - Feeling hot [Unknown]
  - Menorrhagia [Not Recovered/Not Resolved]
  - Menstruation irregular [Recovered/Resolved]
  - Nocturia [Recovering/Resolving]
  - Thirst [Unknown]
  - Dizziness [Unknown]

NARRATIVE: CASE EVENT DATE: 20160725
